FAERS Safety Report 7016834-3 (Version None)
Quarter: 2010Q3

REPORT INFORMATION
  Report Type: 
  Country: None (occurrence: None)
  Receive Date: 20100927
  Receipt Date: 20100915
  Transmission Date: 20110219
  Serious: Yes (Hospitalization)
  Sender: FDA-Public Use
  Company Number: GB-WATSON-2010-12705

PATIENT
  Age: 66 Year
  Sex: Female

DRUGS (5)
  1. CABERGOLINE [Suspect]
     Indication: ON AND OFF PHENOMENON
     Dosage: UP TO 4 MG/DAY
  2. ENTACAPONE [Suspect]
     Indication: ON AND OFF PHENOMENON
     Dosage: UNK
  3. LEVODOPA [Suspect]
     Indication: PARKINSON'S DISEASE
     Dosage: 1200 MG, DAILY, SELF-ADMINISTERED
  4. PERGOLIDE [Suspect]
     Indication: ON AND OFF PHENOMENON
     Dosage: 3 1/2 MG, DAILY
  5. ROPINIROLE [Suspect]
     Indication: ON AND OFF PHENOMENON
     Dosage: UP TO 32 MG, DAILY, SELF-ADMINISTERED

REACTIONS (3)
  - DOPAMINE DYSREGULATION SYNDROME [None]
  - DRUG ABUSE [None]
  - INTENTIONAL SELF-INJURY [None]
